FAERS Safety Report 26051416 (Version 2)
Quarter: 2025Q4

REPORT INFORMATION
  Report Type: Spontaneous
  Country: US (occurrence: US)
  Receive Date: 20251117
  Receipt Date: 20251118
  Transmission Date: 20260117
  Serious: No
  Sender: ELI LILLY AND COMPANY
  Company Number: US-ELI_LILLY_AND_COMPANY-US202511005114

PATIENT
  Age: 63 Year
  Sex: Female

DRUGS (5)
  1. ZEPBOUND [Interacting]
     Active Substance: TIRZEPATIDE
     Indication: Insulin resistance
     Dosage: 5 MG, UNKNOWN
     Route: 065
     Dates: start: 202404
  2. ZEPBOUND [Interacting]
     Active Substance: TIRZEPATIDE
     Indication: Insulin resistance
     Dosage: 5 MG, UNKNOWN
     Route: 065
     Dates: start: 202404
  3. ZEPBOUND [Interacting]
     Active Substance: TIRZEPATIDE
     Indication: Insulin resistance
     Dosage: 5 MG, UNKNOWN
     Route: 065
     Dates: start: 202404
  4. ZEPBOUND [Interacting]
     Active Substance: TIRZEPATIDE
     Indication: Insulin resistance
     Dosage: 5 MG, UNKNOWN
     Route: 065
     Dates: start: 202404
  5. PROLIA [Interacting]
     Active Substance: DENOSUMAB
     Indication: Osteoporosis
     Dosage: 60 MG, UNKNOWN
     Route: 065
     Dates: start: 20250918

REACTIONS (6)
  - Off label use [Unknown]
  - Rhinorrhoea [Recovered/Resolved]
  - Drug interaction [Unknown]
  - Arthralgia [Recovered/Resolved]
  - Fatigue [Recovered/Resolved]
  - Diarrhoea [Recovered/Resolved]

NARRATIVE: CASE EVENT DATE: 20240401
